FAERS Safety Report 7841683-3 (Version None)
Quarter: 2011Q4

REPORT INFORMATION
  Report Type: 
  Country: None (occurrence: None)
  Receive Date: 20111025
  Receipt Date: 20111020
  Transmission Date: 20120403
  Serious: Yes (Other)
  Sender: FDA-Public Use
  Company Number: GB-ASTELLAS-2011EU007145

PATIENT
  Sex: Male
  Weight: 120 kg

DRUGS (3)
  1. ALFUZOSIN HCL [Concomitant]
     Indication: BENIGN PROSTATIC HYPERPLASIA
     Dosage: 10 G, UID/QD
     Route: 048
     Dates: start: 20050930
  2. FINASTERIDE [Concomitant]
     Indication: BENIGN PROSTATIC HYPERPLASIA
     Dosage: 5 G, UID/QD
     Route: 048
     Dates: start: 20050930
  3. VESICARE [Suspect]
     Indication: POLLAKIURIA
     Dosage: 5 MG, UID/QD
     Route: 048
     Dates: start: 20110810, end: 20110914

REACTIONS (2)
  - DYSPHAGIA [None]
  - DYSPEPSIA [None]
